FAERS Safety Report 10408569 (Version 3)
Quarter: 2014Q3

REPORT INFORMATION
  Report Type: Spontaneous
  Country: US (occurrence: US)
  Receive Date: 20140826
  Receipt Date: 20140916
  Transmission Date: 20150326
  Serious: Yes (Disabling, Other)
  Sender: FDA-Public Use
  Company Number: PHEH2013US017470

PATIENT
  Age: 60 Year
  Sex: Male

DRUGS (7)
  1. PREDNISONE. [Concomitant]
     Active Substance: PREDNISONE
     Indication: RHEUMATOID ARTHRITIS
     Dosage: UNK UKN, (2.5 MG TO 1 MG)
     Route: 048
  2. RECLAST [Suspect]
     Active Substance: ZOLEDRONIC ACID
     Indication: OSTEOPOROSIS
     Dosage: 5 MG, UNK
     Route: 042
  3. RECLAST [Suspect]
     Active Substance: ZOLEDRONIC ACID
     Dosage: 5 MG, UNK
     Route: 042
     Dates: start: 20120509
  4. ENBREL [Concomitant]
     Active Substance: ETANERCEPT
     Indication: RHEUMATOID ARTHRITIS
     Dosage: 50 MG/ML, QW
  5. CALCIUM [Concomitant]
     Active Substance: CALCIUM
     Dosage: UNK UKN, UNK
  6. HYDROCODONE [Concomitant]
     Active Substance: HYDROCODONE
     Indication: PAIN
     Dosage: UNK UKN, UNK
     Route: 048
  7. RECLAST [Suspect]
     Active Substance: ZOLEDRONIC ACID
     Dosage: 5 MG, UNK
     Route: 042
     Dates: start: 20110125

REACTIONS (27)
  - Weight decreased [Unknown]
  - Grip strength decreased [Unknown]
  - Impaired healing [Unknown]
  - Tendon rupture [Not Recovered/Not Resolved]
  - Spinal osteoarthritis [Unknown]
  - Musculoskeletal stiffness [Unknown]
  - Gait disturbance [Unknown]
  - Intestinal dilatation [Unknown]
  - Device failure [Unknown]
  - Abdominal pain upper [Unknown]
  - Myalgia [Not Recovered/Not Resolved]
  - Arthralgia [Unknown]
  - Asthenia [Unknown]
  - Back pain [Not Recovered/Not Resolved]
  - Eating disorder [Unknown]
  - Gastrointestinal pain [Unknown]
  - Pain in jaw [Not Recovered/Not Resolved]
  - Eye disorder [Unknown]
  - Agitation [Unknown]
  - Hypokinesia [Unknown]
  - Jaw disorder [Unknown]
  - Spinal disorder [Unknown]
  - Bone pain [Unknown]
  - Musculoskeletal chest pain [Unknown]
  - Fall [Not Recovered/Not Resolved]
  - Impaired self-care [Unknown]
  - Neck pain [Unknown]

NARRATIVE: CASE EVENT DATE: 20120608
